FAERS Safety Report 9420655 (Version 2)
Quarter: 2013Q3

REPORT INFORMATION
  Report Type: Report from Study
  Country: FR (occurrence: FR)
  Receive Date: 20130725
  Receipt Date: 20130902
  Transmission Date: 20140515
  Serious: Yes (Life-Threatening, Hospitalization, Other)
  Sender: FDA-Public Use
  Company Number: PHHY2013FR072904

PATIENT
  Age: 17 Year
  Sex: Female

DRUGS (3)
  1. TOBRAMYCIN INHALATION POWDER [Suspect]
     Indication: PSEUDOMONAS INFECTION
     Dosage: 28 MG, BID
     Dates: start: 20121030, end: 20130705
  2. VENTOLIN [Concomitant]
     Dosage: UNK
  3. ANTIBIOTICS [Concomitant]
     Dosage: UNK

REACTIONS (4)
  - Haemoptysis [Recovering/Resolving]
  - Aspergilloma [Unknown]
  - Hyperplasia [Unknown]
  - Bronchial disorder [Unknown]
